FAERS Safety Report 6313470-9 (Version None)
Quarter: 2009Q3

REPORT INFORMATION
  Report Type: 
  Country: None (occurrence: None)
  Receive Date: 20090814
  Receipt Date: 20090814
  Transmission Date: 20100115
  Serious: Yes (Other)
  Sender: FDA-Public Use
  Company Number: None

PATIENT
  Sex: Female
  Weight: 101 kg

DRUGS (4)
  1. RITUXAN [Suspect]
     Indication: HODGKIN'S DISEASE
     Dosage: 830 MG IV DRIP
     Route: 041
     Dates: start: 20090811, end: 20090811
  2. RITUXAN [Suspect]
     Indication: HODGKIN'S DISEASE
     Dosage: 830MG IV DRIP
     Route: 041
     Dates: start: 20090811, end: 20090811
  3. RITUXAN [Suspect]
  4. RITUXAN [Suspect]

REACTIONS (3)
  - INFUSION RELATED REACTION [None]
  - PRURITUS [None]
  - SENSATION OF FOREIGN BODY [None]
